FAERS Safety Report 9007347 (Version 3)
Quarter: 2013Q1

REPORT INFORMATION
  Report Type: Spontaneous
  Country: US (occurrence: US)
  Receive Date: 20130110
  Receipt Date: 20130122
  Transmission Date: 20140127
  Serious: Yes (Other)
  Sender: FDA-Public Use
  Company Number: US-PFIZER INC-2013007484

PATIENT
  Age: 60 Year
  Sex: Male

DRUGS (7)
  1. LIDOCAINE HCL [Suspect]
     Indication: LOCAL ANAESTHESIA
     Dosage: TOTAL DOSE WAS AT LEAST 280 MG
     Route: 061
  2. WARFARIN [Concomitant]
     Dosage: 5 MG PER DAY
  3. METOPROLOL [Concomitant]
     Dosage: 50 MG DAILY
  4. LISINOPRIL [Concomitant]
     Dosage: 2.5 MG DAILY
  5. DOCUSATE SODIUM [Concomitant]
     Dosage: 100 MG DAILY
  6. POTASSIUM CHLORIDE [Concomitant]
     Dosage: 20 MEQ PER DAY
  7. FUROSEMIDE [Concomitant]
     Dosage: 40 MG EACH DAY

REACTIONS (3)
  - Toxicity to various agents [Unknown]
  - Ataxia [Unknown]
  - Diplopia [Unknown]
